FAERS Safety Report 15559673 (Version 1)
Quarter: 2018Q4

REPORT INFORMATION
  Report Type: Spontaneous
  Country: DE (occurrence: DE)
  Receive Date: 20181029
  Receipt Date: 20181029
  Transmission Date: 20190205
  Serious: Yes (Other)
  Sender: FDA-Public Use
  Company Number: DE-ALK-ABELLO A/S-2018AA003579

PATIENT

DRUGS (3)
  1. RELESS WESPENGIFT [Suspect]
     Active Substance: VESPULA FLAVOPILOSA VENOM PROTEIN\VESPULA GERMANICA VENOM PROTEIN\VESPULA MACULIFRONS VENOM PROTEIN\VESPULA PENSYLVANICA VENOM PROTEIN\VESPULA SQUAMOSA VENOM PROTEIN\VESPULA VULGARIS VENOM PROTEIN
     Dosage: UNK
  2. XOLAIR [Concomitant]
     Active Substance: OMALIZUMAB
     Indication: PREMEDICATION
  3. RELESS WESPENGIFT [Suspect]
     Active Substance: VESPULA FLAVOPILOSA VENOM PROTEIN\VESPULA GERMANICA VENOM PROTEIN\VESPULA MACULIFRONS VENOM PROTEIN\VESPULA PENSYLVANICA VENOM PROTEIN\VESPULA SQUAMOSA VENOM PROTEIN\VESPULA VULGARIS VENOM PROTEIN
     Indication: PRODUCT USED FOR UNKNOWN INDICATION
     Dosage: UNK
     Dates: start: 2013

REACTIONS (10)
  - Pallor [Recovered/Resolved]
  - Prolonged expiration [Recovered/Resolved]
  - Paraesthesia [Recovered/Resolved]
  - Dyspnoea [Recovered/Resolved]
  - Paraesthesia [Recovered/Resolved]
  - Urticaria [Recovered/Resolved]
  - Dizziness [Recovered/Resolved]
  - Hypertension [Recovered/Resolved]
  - Swollen tongue [Recovered/Resolved]
  - Cough [Recovered/Resolved]

NARRATIVE: CASE EVENT DATE: 2013
